FAERS Safety Report 13182839 (Version 1)
Quarter: 2017Q1

REPORT INFORMATION
  Report Type: Spontaneous
  Country: DE (occurrence: DE)
  Receive Date: 20170203
  Receipt Date: 20170203
  Transmission Date: 20170428
  Serious: Yes (Other)
  Sender: FDA-Public Use
  Company Number: DE-009507513-1701DEU011871

PATIENT
  Sex: Female

DRUGS (1)
  1. REMERGIL [Suspect]
     Active Substance: MIRTAZAPINE
     Indication: DEPRESSION
     Dosage: UNK
     Route: 048

REACTIONS (6)
  - Product solubility abnormal [Unknown]
  - Dermatitis allergic [Unknown]
  - Product taste abnormal [Unknown]
  - Throat irritation [Unknown]
  - Respiration abnormal [Unknown]
  - Product physical issue [Unknown]
